FAERS Safety Report 10255932 (Version 3)
Quarter: 2014Q3

REPORT INFORMATION
  Report Type: Spontaneous
  Country: US (occurrence: US)
  Receive Date: 20140624
  Receipt Date: 20140804
  Transmission Date: 20150326
  Serious: Yes (Disabling)
  Sender: FDA-Public Use
  Company Number: US-GLAXOSMITHKLINE-A1077843A

PATIENT
  Age: 75 Year
  Sex: Female

DRUGS (8)
  1. HCTZ [Concomitant]
     Active Substance: HYDROCHLOROTHIAZIDE
  2. ZANTAC [Suspect]
     Active Substance: RANITIDINE HYDROCHLORIDE
     Indication: GASTRIC ULCER
     Dosage: 150MG TWICE PER DAY
     Route: 048
     Dates: start: 2012
  3. DAYPRO [Concomitant]
     Active Substance: OXAPROZIN
  4. PREMARIN [Concomitant]
     Active Substance: ESTROGENS, CONJUGATED
  5. NORVASC [Concomitant]
     Active Substance: AMLODIPINE BESYLATE
  6. PROVERA [Concomitant]
     Active Substance: MEDROXYPROGESTERONE ACETATE
  7. METFORMIN [Concomitant]
     Active Substance: METFORMIN HYDROCHLORIDE
  8. TOPROL XL [Concomitant]
     Active Substance: METOPROLOL SUCCINATE

REACTIONS (4)
  - Visual impairment [Not Recovered/Not Resolved]
  - Foreign body sensation in eyes [Not Recovered/Not Resolved]
  - Vision blurred [Not Recovered/Not Resolved]
  - Product quality issue [Unknown]

NARRATIVE: CASE EVENT DATE: 201406
